FAERS Safety Report 21070141 (Version 2)
Quarter: 2022Q3

REPORT INFORMATION
  Report Type: Report from Study
  Country: US (occurrence: US)
  Receive Date: 20220712
  Receipt Date: 20220929
  Transmission Date: 20221027
  Serious: Yes (Hospitalization, Other)
  Sender: FDA-Public Use
  Company Number: US-NOVARTISPH-NVSC2022US153986

PATIENT
  Age: 87 Year
  Sex: Male

DRUGS (1)
  1. ENTRESTO [Suspect]
     Active Substance: SACUBITRIL\VALSARTAN
     Indication: Product used for unknown indication
     Dosage: 50 MG (24/26 MG), BID
     Route: 048
     Dates: start: 20190101

REACTIONS (8)
  - Rib fracture [Unknown]
  - Dizziness [Unknown]
  - Blindness [Unknown]
  - Amnesia [Unknown]
  - Hypoacusis [Unknown]
  - Head injury [Unknown]
  - Chest discomfort [Unknown]
  - Product use issue [Unknown]

NARRATIVE: CASE EVENT DATE: 20220627
